FAERS Safety Report 7938240-7 (Version None)
Quarter: 2011Q4

REPORT INFORMATION
  Report Type: 
  Country: None (occurrence: None)
  Receive Date: 20111123
  Receipt Date: 20111117
  Transmission Date: 20120403
  Serious: Yes (Other)
  Sender: FDA-Public Use
  Company Number: CHPA2011US016464

PATIENT
  Age: 25 Year
  Sex: Female

DRUGS (7)
  1. TRAZODONE HCL [Suspect]
  2. ACETAMINOPHEN ,DIPHENHYDRAMINE HYDROCHLORIDE [Suspect]
     Dosage: 50-200 TABLETS, OVER SEVERAL HOURS
  3. OLANZAPINE [Suspect]
  4. LEVETIRACETAM [Suspect]
  5. LORAZEPAM [Suspect]
  6. TRAMADOL HCL [Suspect]
  7. ETHANOL [Suspect]

REACTIONS (6)
  - SOMNOLENCE [None]
  - TACHYCARDIA [None]
  - HEPATOTOXICITY [None]
  - NAUSEA [None]
  - OVERDOSE [None]
  - VOMITING [None]
